FAERS Safety Report 8548320-3 (Version None)
Quarter: 2012Q3

REPORT INFORMATION
  Report Type: 
  Country: None (occurrence: None)
  Receive Date: 20120730
  Receipt Date: 20120719
  Transmission Date: 20120928
  Serious: Yes (Other)
  Sender: FDA-Public Use
  Company Number: FI-JNJFOC-20120709953

PATIENT
  Sex: Female

DRUGS (17)
  1. PRIMASPAN [Concomitant]
     Route: 065
  2. MIRTAZAPINE [Concomitant]
     Dosage: ONE FOR THE NIGHT
     Route: 065
  3. UNKNOWN MEDICATION [Concomitant]
     Route: 065
  4. COHEMIN [Concomitant]
     Route: 065
  5. OXIKLORIN [Concomitant]
     Route: 065
  6. EXELON [Concomitant]
     Dosage: SWITCHED AFTER 24 HOURS
     Route: 065
  7. OMEPRAZOLE [Concomitant]
     Route: 065
  8. PIROXIN [Concomitant]
     Route: 065
  9. MEMANTINE HYDROCHLORIDE [Concomitant]
     Route: 065
  10. UNKNOWN MEDICATION [Concomitant]
     Dosage: AS NEEDED
     Route: 065
  11. DURAGESIC-100 [Suspect]
     Indication: PAIN MANAGEMENT
     Route: 062
  12. DEPONIT [Concomitant]
     Dosage: REMOVED IN THE EVENING
     Route: 065
  13. PLENDIL [Concomitant]
     Route: 065
  14. ACETAMINOPHEN [Concomitant]
     Route: 065
  15. UNKNOWN MEDICATION [Concomitant]
     Route: 065
  16. CALCIUM CARBONATE [Concomitant]
     Route: 065
  17. LIPCUT [Concomitant]
     Route: 065

REACTIONS (5)
  - BONE LOSS [None]
  - BACK PAIN [None]
  - MUSCULOSKELETAL STIFFNESS [None]
  - WRONG TECHNIQUE IN DRUG USAGE PROCESS [None]
  - SERONEGATIVE ARTHRITIS [None]
